FAERS Safety Report 5779596-3 (Version None)
Quarter: 2008Q2

REPORT INFORMATION
  Report Type: 
  Country: None (occurrence: None)
  Receive Date: 20080619
  Receipt Date: 20080607
  Transmission Date: 20081010
  Serious: Yes (Other)
  Sender: FDA-Public Use
  Company Number: US-PFIZER INC-2008048836

PATIENT
  Sex: Female
  Weight: 90.7 kg

DRUGS (11)
  1. LYRICA [Suspect]
     Indication: FIBROMYALGIA
     Dates: start: 20080101, end: 20080328
  2. CRESTOR [Concomitant]
  3. LASIX [Concomitant]
  4. POTASSIUM CHLORIDE [Concomitant]
  5. LORCET-HD [Concomitant]
  6. LEXAPRO [Concomitant]
  7. PROMETHAZINE [Concomitant]
  8. DIAZEPAM [Concomitant]
  9. PROTONIX [Concomitant]
  10. DURAGESIC-100 [Concomitant]
  11. IRON [Concomitant]

REACTIONS (7)
  - ACTIVITIES OF DAILY LIVING IMPAIRED [None]
  - DROOLING [None]
  - DYSARTHRIA [None]
  - FEELING ABNORMAL [None]
  - IMPAIRED DRIVING ABILITY [None]
  - OEDEMA PERIPHERAL [None]
  - ROAD TRAFFIC ACCIDENT [None]
